FAERS Safety Report 14208613 (Version 1)
Quarter: 2017Q4

REPORT INFORMATION
  Report Type: Spontaneous
  Country: US (occurrence: US)
  Receive Date: 20171121
  Receipt Date: 20171121
  Transmission Date: 20180321
  Serious: Yes (Hospitalization, Other)
  Sender: FDA-Public Use
  Company Number: US-009507513-1003USA04016

PATIENT
  Sex: Female
  Weight: 81.19 kg

DRUGS (7)
  1. FOSAMAX [Suspect]
     Active Substance: ALENDRONATE SODIUM
     Indication: BONE LOSS
     Dosage: UNK
     Route: 048
     Dates: start: 1998
  2. FOSAMAX [Suspect]
     Active Substance: ALENDRONATE SODIUM
     Dosage: 70 MG, QD
     Route: 048
     Dates: start: 200805
  3. ALENDRONATE SODIUM. [Suspect]
     Active Substance: ALENDRONATE SODIUM
     Indication: BONE LOSS
     Dosage: 70 MG, UNK
     Route: 048
     Dates: start: 20080504, end: 20090210
  4. MK-9278 [Concomitant]
     Active Substance: VITAMINS
     Indication: PRODUCT USED FOR UNKNOWN INDICATION
     Dates: start: 1993
  5. FOSAMAX [Suspect]
     Active Substance: ALENDRONATE SODIUM
     Dosage: 70 MG, QW
     Route: 048
     Dates: start: 20030130, end: 2008
  6. FOSAMAX [Suspect]
     Active Substance: ALENDRONATE SODIUM
     Dosage: 70 MG, QW
     Route: 048
     Dates: start: 20080812, end: 20090124
  7. FOSAMAX [Suspect]
     Active Substance: ALENDRONATE SODIUM
     Indication: PRODUCT USED FOR UNKNOWN INDICATION
     Dosage: 70 MG, QW
     Route: 048
     Dates: start: 2006

REACTIONS (81)
  - Femur fracture [Unknown]
  - Low turnover osteopathy [Unknown]
  - Contusion [Unknown]
  - Back pain [Unknown]
  - Presyncope [Unknown]
  - Hyperlipidaemia [Not Recovered/Not Resolved]
  - Night sweats [Unknown]
  - Bone density decreased [Unknown]
  - Acrochordon [Unknown]
  - Sluggishness [Unknown]
  - Oedema peripheral [Recovering/Resolving]
  - Hypertension [Not Recovered/Not Resolved]
  - Hypoaesthesia [Unknown]
  - Fall [Unknown]
  - Drug hypersensitivity [Unknown]
  - Hiatus hernia [Unknown]
  - Duodenitis [Unknown]
  - Functional gastrointestinal disorder [Unknown]
  - Fracture nonunion [Unknown]
  - Wrong drug administered [Recovered/Resolved]
  - Scoliosis [Unknown]
  - Device failure [Unknown]
  - Femur fracture [Unknown]
  - Fall [Unknown]
  - Gastric ulcer [Unknown]
  - Gastritis [Unknown]
  - Eye contusion [Unknown]
  - Carpal tunnel syndrome [Unknown]
  - Fibula fracture [Unknown]
  - Adverse event [Unknown]
  - Impaired healing [Not Recovered/Not Resolved]
  - Headache [Recovering/Resolving]
  - Presyncope [Unknown]
  - Osteoarthritis [Unknown]
  - Incision site cellulitis [Unknown]
  - Femur fracture [Unknown]
  - Arthropathy [Unknown]
  - Aphthous ulcer [Unknown]
  - Osteoporosis [Not Recovered/Not Resolved]
  - Deep vein thrombosis [Unknown]
  - Peripheral swelling [Unknown]
  - Overdose [Unknown]
  - Medial tibial stress syndrome [Recovering/Resolving]
  - Malaise [Recovering/Resolving]
  - Sleep disorder [Unknown]
  - Joint swelling [Unknown]
  - Ligament sprain [Unknown]
  - Infection [Unknown]
  - Burning sensation [Unknown]
  - Drug hypersensitivity [Unknown]
  - QRS axis abnormal [Unknown]
  - Duodenal ulcer [Unknown]
  - Pyrexia [Unknown]
  - Benign neoplasm [Unknown]
  - Tendonitis [Unknown]
  - Back pain [Unknown]
  - Incision site pain [Unknown]
  - Leukocytosis [Unknown]
  - Arthropathy [Unknown]
  - Lipoma of breast [Unknown]
  - Syncope [Unknown]
  - Hiatus hernia [Unknown]
  - Bursitis [Not Recovered/Not Resolved]
  - Limb discomfort [Unknown]
  - Arthralgia [Unknown]
  - Lipoma [Unknown]
  - Osteopenia [Unknown]
  - Incisional hernia [Unknown]
  - Ankle fracture [Unknown]
  - Adverse event [Unknown]
  - Urinary tract infection [Unknown]
  - Gastrointestinal haemorrhage [Unknown]
  - Irritable bowel syndrome [Unknown]
  - Inappropriate schedule of drug administration [Unknown]
  - Weight increased [Unknown]
  - Osteoarthritis [Not Recovered/Not Resolved]
  - Essential hypertension [Not Recovered/Not Resolved]
  - Haematochezia [Unknown]
  - Fracture nonunion [Unknown]
  - Fracture nonunion [Recovered/Resolved with Sequelae]
  - Ligament rupture [Unknown]

NARRATIVE: CASE EVENT DATE: 199910
